FAERS Safety Report 8671736 (Version 4)
Quarter: 2012Q4

REPORT INFORMATION
  Report Type: 
  Country: US (occurrence: US)
  Receive Date: 20120718
  Receipt Date: 20121026
  Transmission Date: 20130627
  Serious: Yes (Hospitalization)
  Sender: FDA-Public Use
  Company Number: US-GILEAD-2012-0057980

PATIENT
  Age: 65 Year
  Sex: Male

DRUGS (5)
  1. LETAIRIS [Suspect]
     Indication: PULMONARY HYPERTENSION
     Dosage: 5 mg, UNK
     Route: 048
     Dates: start: 20120529, end: 20120706
  2. LETAIRIS [Suspect]
     Indication: DIASTOLIC DYSFUNCTION
  3. LETAIRIS [Suspect]
     Indication: CORONARY ARTERY DISEASE
  4. LETAIRIS [Suspect]
     Indication: UNEVALUABLE EVENT
  5. LETAIRIS [Suspect]
     Indication: RENAL FAILURE CHRONIC

REACTIONS (8)
  - Cerebrovascular accident [Unknown]
  - Swelling [Unknown]
  - Gastric disorder [Unknown]
  - Visual impairment [Unknown]
  - Laboratory test abnormal [Unknown]
  - Coagulopathy [Unknown]
  - Eye disorder [Unknown]
  - Pruritus [Unknown]
